FAERS Safety Report 9434737 (Version 1)
Quarter: 2013Q3

REPORT INFORMATION
  Report Type: Spontaneous
  Country: US (occurrence: US)
  Receive Date: 20130801
  Receipt Date: 20130801
  Transmission Date: 20140515
  Serious: Yes (Other)
  Sender: FDA-Public Use
  Company Number: US-PFIZER INC-2013222629

PATIENT
  Age: 76 Year
  Sex: Female

DRUGS (3)
  1. LYRICA [Suspect]
     Indication: NEUROPATHY PERIPHERAL
     Dosage: UNK
     Dates: start: 2008
  2. VOLTAREN [Suspect]
     Indication: UPPER LIMB FRACTURE
     Dosage: UNK
     Dates: start: 201303
  3. VOLTAREN [Suspect]
     Indication: ARTHROPATHY

REACTIONS (3)
  - Upper limb fracture [Unknown]
  - Withdrawal syndrome [Unknown]
  - Blood glucose abnormal [Unknown]
